FAERS Safety Report 12564662 (Version 1)
Quarter: 2016Q3

REPORT INFORMATION
  Report Type: Spontaneous
  Country: US (occurrence: None)
  Receive Date: 20160715
  Receipt Date: 20160715
  Transmission Date: 20161109
  Serious: No
  Sender: FDA-Public Use
  Company Number: None

PATIENT
  Age: 77 Year
  Sex: Female
  Weight: 123.38 kg

DRUGS (8)
  1. D-3 [Concomitant]
     Active Substance: CHOLECALCIFEROL
  2. LEVOFLOXACIN 500MG TAB LYN AA3 NABP 2623088 [Suspect]
     Active Substance: LEVOFLOXACIN
     Indication: FOOD POISONING
     Route: 048
     Dates: start: 20160412, end: 20160418
  3. XARELTO [Concomitant]
     Active Substance: RIVAROXABAN
  4. OMEGA 3 [Concomitant]
     Active Substance: OMEGA-3 FATTY ACIDS
  5. STOOL SOFTNER [Concomitant]
     Active Substance: DOCUSATE SODIUM
  6. METOPROLOL TARTRATE. [Concomitant]
     Active Substance: METOPROLOL TARTRATE
  7. FUROSEMIDE. [Concomitant]
     Active Substance: FUROSEMIDE
  8. ASPRIN [Concomitant]
     Active Substance: ASPIRIN

REACTIONS (10)
  - Dizziness [None]
  - Night sweats [None]
  - Bone pain [None]
  - Pain [None]
  - Restlessness [None]
  - Paraesthesia [None]
  - Insomnia [None]
  - Asthenia [None]
  - Tremor [None]
  - Blood glucose abnormal [None]

NARRATIVE: CASE EVENT DATE: 20160415
